FAERS Safety Report 19864674 (Version 1)
Quarter: 2021Q3

REPORT INFORMATION
  Report Type: Other
  Country: US (occurrence: US)
  Receive Date: 20210921
  Receipt Date: 20210921
  Transmission Date: 20211014
  Serious: No
  Sender: FDA-Public Use
  Company Number: US-ACORDA-ACO_169681_2021

PATIENT
  Sex: Female

DRUGS (2)
  1. INBRIJA [Suspect]
     Active Substance: LEVODOPA
     Indication: PARKINSON^S DISEASE
  2. INBRIJA [Suspect]
     Active Substance: LEVODOPA
     Indication: ON AND OFF PHENOMENON
     Dosage: 84 MILLIGRAM AS DIRECTED, AS NEEDED, NOT TO EXCEED 5 TIMES PER DAY
     Dates: start: 20201203

REACTIONS (3)
  - Device use issue [None]
  - Parkinson^s disease [Not Recovered/Not Resolved]
  - Product residue present [Unknown]
